FAERS Safety Report 8124103-3 (Version None)
Quarter: 2012Q1

REPORT INFORMATION
  Report Type: 
  Country: None (occurrence: None)
  Receive Date: 20120209
  Receipt Date: 20120203
  Transmission Date: 20120608
  Serious: No
  Sender: FDA-Public Use
  Company Number: US-PFIZER INC-2012032016

PATIENT
  Sex: Female

DRUGS (1)
  1. SUTENT [Suspect]
     Indication: RENAL CANCER METASTATIC
     Dosage: UNK

REACTIONS (5)
  - THYROID DISORDER [None]
  - WHITE BLOOD CELL COUNT DECREASED [None]
  - SWOLLEN TONGUE [None]
  - RED BLOOD CELL COUNT DECREASED [None]
  - HYPERTENSION [None]
